FAERS Safety Report 13131344 (Version 3)
Quarter: 2017Q1

REPORT INFORMATION
  Report Type: Report from Study
  Country: JP (occurrence: JP)
  Receive Date: 20170119
  Receipt Date: 20170324
  Transmission Date: 20170428
  Serious: No
  Sender: FDA-Public Use
  Company Number: JP-UCBSA-2017001877

PATIENT
  Age: 85 Year
  Sex: Male
  Weight: 37 kg

DRUGS (2)
  1. TEGRETOL [Concomitant]
     Active Substance: CARBAMAZEPINE
     Indication: PARTIAL SEIZURES WITH SECONDARY GENERALISATION
     Dosage: 500 MG DAILY
     Dates: start: 20160425, end: 20160506
  2. LEVETIRACETAM. [Suspect]
     Active Substance: LEVETIRACETAM
     Indication: PARTIAL SEIZURES WITH SECONDARY GENERALISATION
     Dosage: 500 MG, 2X/DAY (BID)
     Route: 048
     Dates: start: 20160505, end: 20160526

REACTIONS (5)
  - Haematocrit decreased [Unknown]
  - Platelet count decreased [Unknown]
  - Enteritis infectious [Recovered/Resolved]
  - Gamma-glutamyltransferase decreased [Unknown]
  - Hypokalaemia [Unknown]

NARRATIVE: CASE EVENT DATE: 20160509
